FAERS Safety Report 26087941 (Version 1)
Quarter: 2025Q4

REPORT INFORMATION
  Report Type: Spontaneous
  Country: TN (occurrence: TN)
  Receive Date: 20251125
  Receipt Date: 20251125
  Transmission Date: 20260117
  Serious: Yes (Other)
  Sender: CHEPLAPHARM
  Company Number: None

PATIENT
  Sex: Female

DRUGS (5)
  1. URSODIOL [Suspect]
     Active Substance: URSODIOL
     Indication: Progressive familial intrahepatic cholestasis
  2. GANCICLOVIR [Suspect]
     Active Substance: GANCICLOVIR
     Indication: Cytomegalovirus infection
     Route: 042
  3. SPIRONOLACTONE [Suspect]
     Active Substance: SPIRONOLACTONE
  4. VITAMIN K [Suspect]
     Active Substance: PHYTONADIONE
  5. DEXTROSE [Concomitant]
     Active Substance: DEXTROSE MONOHYDRATE
     Route: 042

REACTIONS (8)
  - Cholestasis [Unknown]
  - Thrombocytopenia [Unknown]
  - Condition aggravated [Not Recovered/Not Resolved]
  - Ascites [Unknown]
  - Hypoglycaemia [Unknown]
  - Anaemia [Unknown]
  - Off label use [Unknown]
  - Off label use [Unknown]
